FAERS Safety Report 4894325-3 (Version None)
Quarter: 2006Q1

REPORT INFORMATION
  Report Type: 
  Country: None (occurrence: None)
  Receive Date: 20060127
  Receipt Date: 20060124
  Transmission Date: 20060701
  Serious: Yes (Hospitalization)
  Sender: FDA-Public Use
  Company Number: DE-MERCK-0601DEU00108

PATIENT
  Age: 82 Year
  Sex: Male
  Weight: 102 kg

DRUGS (1)
  1. COSOPT [Suspect]
     Indication: INTRAOCULAR PRESSURE INCREASED
     Route: 047
     Dates: start: 19960101

REACTIONS (4)
  - BLOOD GLUCOSE INCREASED [None]
  - BLOOD PRESSURE INCREASED [None]
  - RENAL IMPAIRMENT [None]
  - THYROID DISORDER [None]
